FAERS Safety Report 6283441-X (Version None)
Quarter: 2009Q3

REPORT INFORMATION
  Report Type: 
  Country: None (occurrence: None)
  Receive Date: 20090724
  Receipt Date: 20090409
  Transmission Date: 20100115
  Serious: No
  Sender: FDA-Public Use
  Company Number: US-ALEXION-A200900267

PATIENT
  Sex: Male

DRUGS (1)
  1. SOLIRIS [Suspect]

REACTIONS (2)
  - PURPURA [None]
  - RASH PUSTULAR [None]
